FAERS Safety Report 12498032 (Version 4)
Quarter: 2016Q4

REPORT INFORMATION
  Report Type: Spontaneous
  Country: US (occurrence: US)
  Receive Date: 20160626
  Receipt Date: 20161017
  Transmission Date: 20170207
  Serious: Yes (Other)
  Sender: FDA-Public Use
  Company Number: US-ACTELION-A-NJ2016-135010

PATIENT
  Age: 47 Year
  Sex: Female

DRUGS (5)
  1. AMBRISENTAN [Suspect]
     Active Substance: AMBRISENTAN
     Indication: PRODUCT USED FOR UNKNOWN INDICATION
     Dosage: 10 MG, QD
     Route: 065
     Dates: start: 20150817
  2. UPTRAVI [Suspect]
     Active Substance: SELEXIPAG
     Indication: PRODUCT USED FOR UNKNOWN INDICATION
     Dosage: 1000 MCG, BID
     Route: 048
  3. VELETRI [Suspect]
     Active Substance: EPOPROSTENOL
     Indication: PRODUCT USED FOR UNKNOWN INDICATION
     Route: 042
  4. RIOCIGUAT [Suspect]
     Active Substance: RIOCIGUAT
     Indication: PRODUCT USED FOR UNKNOWN INDICATION
     Dosage: UNK
     Route: 065
  5. OXYGEN. [Concomitant]
     Active Substance: OXYGEN

REACTIONS (11)
  - Headache [Not Recovered/Not Resolved]
  - Nausea [Not Recovered/Not Resolved]
  - Diarrhoea [Not Recovered/Not Resolved]
  - Blood potassium abnormal [Unknown]
  - Dyspnoea [Not Recovered/Not Resolved]
  - Cardiac failure [Unknown]
  - Swelling [Unknown]
  - Pain in extremity [Unknown]
  - Oedema peripheral [Recovered/Resolved]
  - Vomiting [Not Recovered/Not Resolved]
  - Flushing [Unknown]
